FAERS Safety Report 14505399 (Version 1)
Quarter: 2018Q1

REPORT INFORMATION
  Report Type: Spontaneous
  Country: IT (occurrence: IT)
  Receive Date: 20180208
  Receipt Date: 20180208
  Transmission Date: 20180509
  Serious: Yes (Life-Threatening, Other)
  Sender: FDA-Public Use
  Company Number: IT-EMD SERONO-E2B_90017609

PATIENT
  Sex: Female

DRUGS (2)
  1. MENOTROPHIN [Suspect]
     Active Substance: MENOTROPINS
     Indication: PRODUCT USED FOR UNKNOWN INDICATION
     Route: 050
  2. CLOMIFENE [Suspect]
     Active Substance: CLOMIPHENE
     Indication: PRODUCT USED FOR UNKNOWN INDICATION
     Route: 050

REACTIONS (5)
  - Premature baby [Unknown]
  - Foetal growth restriction [Unknown]
  - Retinopathy of prematurity [Recovering/Resolving]
  - Neonatal respiratory distress syndrome [Recovering/Resolving]
  - Low birth weight baby [Unknown]
